FAERS Safety Report 9364011 (Version 1)
Quarter: 2013Q2

REPORT INFORMATION
  Report Type: Spontaneous
  Country: US (occurrence: None)
  Receive Date: 20130620
  Receipt Date: 20130620
  Transmission Date: 20140414
  Serious: Yes (Life-Threatening, Hospitalization, Disabling, Other)
  Sender: FDA-Public Use
  Company Number: 2013US0243

PATIENT
  Age: 12 Year
  Sex: Male
  Weight: 19.4 kg

DRUGS (1)
  1. ANAKINRA [Suspect]
     Indication: DEFICIENCY OF THE INTERLEUKIN-1 RECEPTOR ANTAGONIST
     Dates: start: 20080730

REACTIONS (1)
  - Haemorrhage intracranial [None]
